FAERS Safety Report 8896716 (Version 1)
Quarter: 2012Q4

REPORT INFORMATION
  Report Type: 
  Country: SE (occurrence: SE)
  Receive Date: 20121108
  Receipt Date: 20121108
  Transmission Date: 20130627
  Serious: Yes (Hospitalization)
  Sender: FDA-Public Use
  Company Number: SE-PFIZER INC-2012275041

PATIENT
  Age: 90 Year
  Sex: Male
  Weight: 69.5 kg

DRUGS (6)
  1. GENOTROPIN [Suspect]
     Dosage: 0.27 mg, 1x/day, 7 injections/week
     Route: 058
     Dates: start: 19990421
  2. APROVEL [Concomitant]
     Indication: HYPERTENSION
     Dosage: UNK
     Dates: start: 20090101
  3. AVANDIA [Concomitant]
     Indication: DIABETES
     Dosage: UNK
     Dates: start: 20090101
  4. HYDROCORTISONE [Concomitant]
     Indication: ADRENAL INSUFFICIENCY
     Dosage: UNK
     Dates: start: 20090101
  5. LEVAXIN [Concomitant]
     Indication: ACQUIRED HYPOTHYROIDISM
     Dosage: UNK
     Dates: start: 19960404
  6. METFORMIN [Concomitant]
     Indication: DIABETES MELLITUS
     Dosage: UNK
     Dates: start: 20090101

REACTIONS (1)
  - Blood count abnormal [Unknown]
